FAERS Safety Report 24583710 (Version 1)
Quarter: 2024Q4

REPORT INFORMATION
  Report Type: Spontaneous
  Country: GB (occurrence: GB)
  Receive Date: 20241106
  Receipt Date: 20241106
  Transmission Date: 20250114
  Serious: Yes (Other)
  Sender: HIKMA
  Company Number: None

PATIENT
  Age: 66 Year
  Sex: Male

DRUGS (6)
  1. CARBOPLATIN [Suspect]
     Active Substance: CARBOPLATIN
     Indication: Lung neoplasm malignant
     Dosage: 400MG
     Route: 041
  2. GEMCITABINE [Suspect]
     Active Substance: GEMCITABINE
     Indication: Lung neoplasm malignant
     Dosage: 1400MG
     Route: 041
  3. DEXAMETHASONE [Concomitant]
     Active Substance: DEXAMETHASONE
     Indication: Product used for unknown indication
     Dosage: UNKNOWN
     Route: 065
  4. FAMOTIDINE [Concomitant]
     Active Substance: FAMOTIDINE
     Indication: Product used for unknown indication
     Dosage: UNKNOWN
     Route: 065
  5. METOCLOPRAMIDE [Concomitant]
     Active Substance: METOCLOPRAMIDE
     Indication: Product used for unknown indication
     Dosage: UNKNOWN
     Route: 065
  6. ONDANSETRON [Concomitant]
     Active Substance: ONDANSETRON
     Indication: Product used for unknown indication
     Dosage: UNKNOWN
     Route: 065

REACTIONS (2)
  - Fatigue [Unknown]
  - Dyspnoea [Unknown]

NARRATIVE: CASE EVENT DATE: 20241023
